FAERS Safety Report 25973698 (Version 1)
Quarter: 2025Q4

REPORT INFORMATION
  Report Type: Spontaneous
  Country: US (occurrence: US)
  Receive Date: 20251029
  Receipt Date: 20251029
  Transmission Date: 20260117
  Serious: No
  Sender: AMNEAL
  Company Number: US-AMNEAL PHARMACEUTICALS-2025-AMRX-00471

PATIENT
  Age: 40 Year
  Sex: Female

DRUGS (2)
  1. PROGESTERONE [Suspect]
     Active Substance: PROGESTERONE
     Indication: Menopause
     Dosage: UNK, PILL
     Route: 048
  2. PROGESTERONE [Suspect]
     Active Substance: PROGESTERONE
     Indication: Apathy

REACTIONS (2)
  - Abdominal distension [Unknown]
  - Weight increased [Unknown]
